FAERS Safety Report 9308178 (Version 2)
Quarter: 2013Q3

REPORT INFORMATION
  Report Type: Report from Study
  Country: JP (occurrence: JP)
  Receive Date: 20130524
  Receipt Date: 20130827
  Transmission Date: 20140515
  Serious: Yes (Hospitalization)
  Sender: FDA-Public Use
  Company Number: JP-PFIZER INC-2013157232

PATIENT
  Age: 64 Year
  Sex: Female
  Weight: 63 kg

DRUGS (8)
  1. XALKORI [Suspect]
     Indication: NON-SMALL CELL LUNG CANCER
     Dosage: 250 MG, 2X/DAY
     Route: 048
     Dates: start: 20120913, end: 20130226
  2. METHOTREXATE SODIUM [Suspect]
     Indication: RHEUMATOID ARTHRITIS
     Dosage: 6 MG, WEEKLY
     Route: 048
     Dates: end: 20130218
  3. DIOVAN [Concomitant]
     Dosage: 80 MG, 1X/DAY
     Route: 048
     Dates: end: 20120924
  4. ZYLORIC [Concomitant]
     Dosage: 50 MG, 1X/DAY
     Route: 048
     Dates: end: 20121001
  5. ALOSITOL [Concomitant]
     Dosage: 100 MG, 1X/DAY
     Route: 048
     Dates: start: 20121001
  6. ACINON [Concomitant]
     Dosage: 150 MG, 1X/DAY
     Route: 048
  7. FOLIAMIN [Concomitant]
     Dosage: 10 MG,ON SUNDAYS  (WEEKLY)
     Route: 048
     Dates: end: 20130217
  8. URSO [Concomitant]
     Dosage: 100 MG, 3X/DAY
     Route: 048
     Dates: start: 20121119

REACTIONS (1)
  - Renal abscess [Recovering/Resolving]
